FAERS Safety Report 7692305-6 (Version None)
Quarter: 2011Q3

REPORT INFORMATION
  Report Type: 
  Country: None (occurrence: None)
  Receive Date: 20110818
  Receipt Date: 20110811
  Transmission Date: 20111222
  Serious: Yes (Hospitalization)
  Sender: FDA-Public Use
  Company Number: DE-CEPHALON-2011003985

PATIENT
  Age: 74 Year
  Sex: Male
  Weight: 82 kg

DRUGS (5)
  1. BENDAMUSTINE HCL [Suspect]
     Route: 042
     Dates: start: 20110715
  2. LENALIDOMIDE [Suspect]
     Route: 048
     Dates: start: 20110715
  3. ERYTHROZYTEN KONZENTRAT [Suspect]
  4. RITUXIMAB [Suspect]
     Route: 042
     Dates: start: 20110714
  5. ATROVENT [Concomitant]
     Dates: start: 20110725

REACTIONS (1)
  - SYNCOPE [None]
